FAERS Safety Report 9879003 (Version 2)
Quarter: 2014Q1

REPORT INFORMATION
  Report Type: Spontaneous
  Country: US (occurrence: US)
  Receive Date: 20140206
  Receipt Date: 20140206
  Transmission Date: 20141002
  Serious: No
  Sender: FDA-Public Use
  Company Number: US-ALLERGAN-1312825US

PATIENT
  Age: 66 Year
  Sex: Female

DRUGS (4)
  1. BOTOX [Suspect]
     Indication: SPASMODIC DYSPHONIA
     Dosage: UNK UNK, SINGLE
     Dates: start: 20130607, end: 20130607
  2. BOTOX [Suspect]
     Dosage: UNK UNK, SINGLE
     Dates: start: 20130315, end: 20130315
  3. CALCIUM [Concomitant]
     Indication: MINERAL SUPPLEMENTATION
     Dosage: UNK
  4. ASA [Concomitant]
     Indication: PRODUCT USED FOR UNKNOWN INDICATION
     Dosage: 81 MG, QD
     Route: 048

REACTIONS (20)
  - Paraesthesia oral [Recovered/Resolved]
  - Dysgeusia [Recovered/Resolved]
  - Gait disturbance [Recovering/Resolving]
  - Weight bearing difficulty [Recovering/Resolving]
  - Sensory disturbance [Recovered/Resolved]
  - Sensory disturbance [Recovered/Resolved]
  - Sensory disturbance [Recovered/Resolved]
  - Sensory disturbance [Not Recovered/Not Resolved]
  - Sensation of pressure [Recovered/Resolved]
  - Sensation of pressure [Recovered/Resolved]
  - Sensation of pressure [Recovered/Resolved]
  - Sensory disturbance [Not Recovered/Not Resolved]
  - Foreign body sensation in eyes [Recovered/Resolved]
  - Lip exfoliation [Not Recovered/Not Resolved]
  - Lip disorder [Recovering/Resolving]
  - Sensory disturbance [Recovering/Resolving]
  - Headache [Recovered/Resolved]
  - Pruritus [Recovered/Resolved]
  - Facial paresis [Unknown]
  - Dry mouth [Not Recovered/Not Resolved]
